FAERS Safety Report 4316685-4 (Version None)
Quarter: 2004Q1

REPORT INFORMATION
  Report Type: 
  Country: None (occurrence: None)
  Receive Date: 20040311
  Receipt Date: 20040224
  Transmission Date: 20041129
  Serious: Yes (Hospitalization)
  Sender: FDA-Public Use
  Company Number: 184588

PATIENT
  Age: 75 Year
  Sex: Female
  Weight: 68.0396 kg

DRUGS (21)
  1. AVONEX [Suspect]
     Indication: MULTIPLE SCLEROSIS
     Dosage: 30 MCG QW IM
     Route: 030
     Dates: start: 20010801, end: 20030901
  2. AVONEX [Suspect]
     Indication: MULTIPLE SCLEROSIS
     Dosage: 30 MCG QW IM
     Route: 030
     Dates: start: 20030901
  3. BUSPIRONE HCL [Concomitant]
  4. AMBIEN [Concomitant]
  5. REMINYL [Concomitant]
  6. SYNTHROID [Concomitant]
  7. ZOLOFT [Concomitant]
  8. SENIOR VITAMINS [Concomitant]
  9. SPECTRAVITE [Concomitant]
  10. GLUCOSAMINE W/CHONDROITIN SULFATES [Concomitant]
  11. VITAMIN E [Concomitant]
  12. FOLIC ACID [Concomitant]
  13. GINKGOLD [Concomitant]
  14. VITAMIN C [Concomitant]
  15. BETACAROTENE [Concomitant]
  16. ASPIRIN [Concomitant]
  17. ARICEPT [Concomitant]
  18. PEMOLINE [Concomitant]
  19. FLUOXETINE [Concomitant]
  20. DITROPAN [Concomitant]
  21. ANTI-DIARRHEAL AGENTS [Concomitant]

REACTIONS (16)
  - AORTIC VALVE INCOMPETENCE [None]
  - CARDIAC FAILURE CONGESTIVE [None]
  - CHRONIC OBSTRUCTIVE AIRWAYS DISEASE [None]
  - CONGESTIVE CARDIOMYOPATHY [None]
  - DYSPNOEA [None]
  - DYSPNOEA EXERTIONAL [None]
  - EJECTION FRACTION DECREASED [None]
  - HEART RATE INCREASED [None]
  - LYMPHADENOPATHY [None]
  - MITRAL VALVE INCOMPETENCE [None]
  - PLEURAL EFFUSION [None]
  - PNEUMONIA [None]
  - PULMONARY HYPERTENSION [None]
  - PULMONARY MASS [None]
  - TRICUSPID VALVE INCOMPETENCE [None]
  - WEIGHT INCREASED [None]
